FAERS Safety Report 9869722 (Version 1)
Quarter: 2014Q1

REPORT INFORMATION
  Report Type: Spontaneous
  Country: US (occurrence: None)
  Receive Date: 20140203
  Receipt Date: 20140203
  Transmission Date: 20141002
  Serious: No
  Sender: FDA-Public Use
  Company Number: None

PATIENT
  Age: 68 Year
  Sex: Male

DRUGS (4)
  1. VELCADE [Suspect]
     Indication: PLASMA CELL MYELOMA
     Route: 058
     Dates: start: 201310, end: 201401
  2. REVLIMID [Concomitant]
  3. DEXAMETHASONE [Concomitant]
  4. POMALYST [Concomitant]

REACTIONS (4)
  - Malaise [None]
  - Hip fracture [None]
  - Drug ineffective [None]
  - Blood glucose increased [None]
